FAERS Safety Report 5044125-9 (Version None)
Quarter: 2006Q3

REPORT INFORMATION
  Report Type: 
  Country: None (occurrence: None)
  Receive Date: 20060706
  Receipt Date: 20060524
  Transmission Date: 20061208
  Serious: Yes (Other)
  Sender: FDA-Public Use
  Company Number: BR-ROCHE-450352

PATIENT
  Age: 22 Year
  Sex: Female
  Weight: 60 kg

DRUGS (4)
  1. VIRACEPT [Suspect]
     Indication: HIV INFECTION
     Route: 048
     Dates: start: 20060505, end: 20060519
  2. BIOVIR [Concomitant]
     Indication: HIV INFECTION
     Route: 048
  3. VITAMIN NOS [Concomitant]
     Indication: HIV INFECTION
     Dosage: DRUG NAME REPORTED AS POLYVITAMIN.
     Route: 048
  4. FERROUS SULFATE TAB [Concomitant]
     Route: 048

REACTIONS (2)
  - ABORTION MISSED [None]
  - DRUG EXPOSURE DURING PREGNANCY [None]
